FAERS Safety Report 8541529-4 (Version None)
Quarter: 2012Q3

REPORT INFORMATION
  Report Type: 
  Country: None (occurrence: None)
  Receive Date: 20120726
  Receipt Date: 20110919
  Transmission Date: 20120928
  Serious: No
  Sender: FDA-Public Use
  Company Number: US-ASTRAZENECA-2011SE56058

PATIENT
  Sex: Male
  Weight: 63.5 kg

DRUGS (2)
  1. SEROQUEL [Suspect]
     Indication: BIPOLAR DISORDER
     Route: 048
  2. SEROQUEL [Suspect]
     Indication: PERSONALITY DISORDER
     Route: 048

REACTIONS (6)
  - PRURITUS GENERALISED [None]
  - DECREASED APPETITE [None]
  - NAUSEA [None]
  - ABDOMINAL DISCOMFORT [None]
  - ANXIETY [None]
  - DRUG DOSE OMISSION [None]
